FAERS Safety Report 6423524-4 (Version None)
Quarter: 2009Q4

REPORT INFORMATION
  Report Type: 
  Country: None (occurrence: None)
  Receive Date: 20091102
  Receipt Date: 20081218
  Transmission Date: 20100525
  Serious: No
  Sender: FDA-Public Use
  Company Number: A0753687A

PATIENT
  Age: 45 Year
  Sex: Female

DRUGS (4)
  1. RYTHMOL SR [Suspect]
     Indication: ATRIAL FIBRILLATION
     Dosage: 325MG TWICE PER DAY
     Route: 048
     Dates: start: 20071018
  2. FLU SHOT [Concomitant]
     Dates: start: 20081021
  3. LEVOXYL [Concomitant]
  4. ASPIRIN [Concomitant]

REACTIONS (3)
  - FATIGUE [None]
  - PALPITATIONS [None]
  - PRODUCT QUALITY ISSUE [None]
